FAERS Safety Report 18337066 (Version 1)
Quarter: 2020Q4

REPORT INFORMATION
  Report Type: Spontaneous
  Country: US (occurrence: US)
  Receive Date: 20201002
  Receipt Date: 20201002
  Transmission Date: 20210113
  Serious: Yes (Life-Threatening, Hospitalization, Other)
  Sender: FDA-Public Use
  Company Number: US-MELINTA THERAPEUTICS, INC-US-MLNT-19-00195

PATIENT
  Age: 90 Year
  Sex: Female
  Weight: 44 kg

DRUGS (2)
  1. ORBACTIV [Suspect]
     Active Substance: ORITAVANCIN
     Dosage: NOT PROVIDED.
     Route: 041
     Dates: start: 20191017, end: 20191017
  2. ORBACTIV [Suspect]
     Active Substance: ORITAVANCIN
     Indication: OSTEOMYELITIS
     Dosage: ONCE EVERY 7 DAYS
     Route: 041
     Dates: start: 20191003, end: 20191003

REACTIONS (7)
  - Off label use [Recovered/Resolved]
  - Hypotension [Recovered/Resolved]
  - Chills [Recovered/Resolved]
  - Back pain [Recovered/Resolved]
  - Urticaria [Recovered/Resolved]
  - Dyspnoea [Recovered/Resolved]
  - Infusion related reaction [Recovered/Resolved]

NARRATIVE: CASE EVENT DATE: 20191017
